FAERS Safety Report 5743379-0 (Version None)
Quarter: 2008Q2

REPORT INFORMATION
  Report Type: 
  Country: None (occurrence: None)
  Receive Date: 20080520
  Receipt Date: 20080512
  Transmission Date: 20081010
  Serious: Yes (Other)
  Sender: FDA-Public Use
  Company Number: GB-RANBAXY-2008RR-15109

PATIENT

DRUGS (1)
  1. LISINOPRIL 2.5MG TABLETS [Suspect]
     Dosage: 2.5 MG, UNK
     Route: 048
     Dates: start: 20080424, end: 20080426

REACTIONS (1)
  - MOUTH ULCERATION [None]
